FAERS Safety Report 9085014 (Version 1)
Quarter: 2013Q1

REPORT INFORMATION
  Report Type: Report from Study
  Country: US (occurrence: US)
  Receive Date: 20130131
  Receipt Date: 20130131
  Transmission Date: 20140127
  Serious: No
  Sender: FDA-Public Use
  Company Number: US-ABBOTT-12P-163-0974002-00

PATIENT
  Age: 65 Year
  Sex: Female

DRUGS (9)
  1. HUMIRA [Suspect]
     Indication: RHEUMATOID ARTHRITIS
     Route: 058
     Dates: start: 20120507
  2. CELEBREX [Concomitant]
     Indication: RHEUMATOID ARTHRITIS
     Route: 048
  3. MEDROL [Concomitant]
     Indication: RHEUMATOID ARTHRITIS
     Route: 048
  4. MEDROL [Concomitant]
     Route: 048
  5. METHOTREXATE [Concomitant]
     Indication: RHEUMATOID ARTHRITIS
     Route: 048
  6. CRESTOR [Concomitant]
     Indication: BLOOD CHOLESTEROL INCREASED
     Route: 048
  7. LISINOPRIL [Concomitant]
     Indication: HYPERTENSION
     Route: 048
  8. NORVASC [Concomitant]
     Indication: HYPERTENSION
     Route: 048
  9. FOLIC ACID [Concomitant]
     Indication: PRODUCT USED FOR UNKNOWN INDICATION
     Route: 048

REACTIONS (4)
  - Incorrect dose administered [Unknown]
  - Back pain [Recovering/Resolving]
  - Arthralgia [Not Recovered/Not Resolved]
  - Injection site haemorrhage [Unknown]
